FAERS Safety Report 7398211-9 (Version None)
Quarter: 2011Q2

REPORT INFORMATION
  Report Type: 
  Country: None (occurrence: None)
  Receive Date: 20110406
  Receipt Date: 20110325
  Transmission Date: 20111010
  Serious: Yes (Death, Life-Threatening, Hospitalization, Other)
  Sender: FDA-Public Use
  Company Number: JP-PFIZER INC-JP-WYE-H11688809

PATIENT
  Age: 81 Year
  Sex: Male
  Weight: 52 kg

DRUGS (12)
  1. ITOROL [Concomitant]
     Dosage: UNK
     Route: 065
     Dates: start: 20030301
  2. PLAVIX [Suspect]
     Indication: ACUTE MYOCARDIAL INFARCTION
     Dosage: 75.0 MG, 1X/DAY
     Route: 048
     Dates: start: 20090709, end: 20090916
  3. ROSUVASTATIN CALCIUM [Concomitant]
     Dosage: UNK
     Route: 065
     Dates: start: 20090820
  4. ASPIRIN [Concomitant]
     Dosage: UNK
     Route: 065
     Dates: start: 20030301
  5. PARIET [Concomitant]
     Dosage: UNK
     Route: 065
     Dates: start: 20090430
  6. CONIEL [Concomitant]
     Dosage: UNK
     Route: 065
     Dates: start: 20090731
  7. SIGMART [Concomitant]
     Dosage: UNK
     Route: 065
     Dates: start: 20090326
  8. BASEN [Suspect]
     Indication: DIABETES MELLITUS
     Dosage: 0.3 MG, 3X/DAY
     Route: 048
     Dates: start: 20090521, end: 20090916
  9. ANCARON [Suspect]
     Indication: VENTRICULAR FIBRILLATION
     Dosage: 100.0 MG, 2X/DAY
     Route: 048
     Dates: start: 20090709, end: 20090819
  10. ANCARON [Suspect]
     Indication: VENTRICULAR TACHYCARDIA
     Dosage: 100.0 MG, 1X/DAY
     Route: 048
     Dates: start: 20090820, end: 20090916
  11. PLAVIX [Suspect]
     Indication: PERCUTANEOUS CORONARY INTERVENTION
  12. ARTIST [Concomitant]
     Dosage: UNK
     Route: 065
     Dates: start: 20090501

REACTIONS (6)
  - INTERSTITIAL LUNG DISEASE [None]
  - PNEUMONIA FUNGAL [None]
  - DISSEMINATED INTRAVASCULAR COAGULATION [None]
  - LIVER DISORDER [None]
  - HEPATOCELLULAR INJURY [None]
  - PNEUMONIA VIRAL [None]
